FAERS Safety Report 5816112-1 (Version None)
Quarter: 2008Q3

REPORT INFORMATION
  Report Type: 
  Country: None (occurrence: None)
  Receive Date: 20080716
  Receipt Date: 20080716
  Transmission Date: 20090109
  Serious: Yes (Death, Life-Threatening)
  Sender: FDA-Public Use
  Company Number: None

PATIENT
  Age: 79 Year
  Sex: Male
  Weight: 98.8842 kg

DRUGS (1)
  1. AMIODARONE HCL [Suspect]
     Indication: PULMONARY TOXICITY
     Dosage: 200MG
     Dates: start: 20080430, end: 20080715

REACTIONS (2)
  - DYSPNOEA [None]
  - LUNG DISORDER [None]
